FAERS Safety Report 7000536-3 (Version None)
Quarter: 2010Q3

REPORT INFORMATION
  Report Type: 
  Country: None (occurrence: None)
  Receive Date: 20100920
  Receipt Date: 20070926
  Transmission Date: 20110219
  Serious: Yes (Other)
  Sender: FDA-Public Use
  Company Number: US-ASTRAZENECA-2006UW25951

PATIENT
  Age: 49 Year
  Sex: Female
  Weight: 47.3 kg

DRUGS (6)
  1. SEROQUEL [Suspect]
     Indication: DEPRESSION
     Dosage: 100-200 MG
     Route: 048
     Dates: start: 20000530
  2. SEROQUEL [Suspect]
     Route: 048
  3. WELLBUTRIN [Concomitant]
     Dates: start: 19980222
  4. ATIVAN [Concomitant]
     Dates: start: 19980224
  5. KLONOPIN [Concomitant]
     Indication: ANXIETY
     Dosage: 2 MG TWO AT BEDTIME, TWO IN THE MORNING
     Dates: start: 19980222
  6. IMIPRAMINE [Concomitant]
     Indication: SLEEP DISORDER
     Dosage: 100MG TWO AT BEDTIME
     Dates: start: 19980222

REACTIONS (4)
  - DIABETES MELLITUS [None]
  - HYPERGLYCAEMIA [None]
  - PANCREATITIS [None]
  - TYPE 2 DIABETES MELLITUS [None]
